FAERS Safety Report 7459439-2 (Version None)
Quarter: 2011Q2

REPORT INFORMATION
  Report Type: 
  Country: None (occurrence: None)
  Receive Date: 20110505
  Receipt Date: 20110422
  Transmission Date: 20111010
  Serious: Yes (Hospitalization)
  Sender: FDA-Public Use
  Company Number: US-JNJFOC-20110410560

PATIENT
  Sex: Male
  Weight: 44.2 kg

DRUGS (8)
  1. IRON [Concomitant]
  2. INFLIXIMAB, RECOMBINANT [Suspect]
     Route: 042
  3. INFLIXIMAB, RECOMBINANT [Suspect]
     Indication: CROHN'S DISEASE
     Route: 042
  4. INFLIXIMAB, RECOMBINANT [Suspect]
     Route: 042
  5. MESALAMINE [Concomitant]
     Indication: INFLAMMATORY BOWEL DISEASE
  6. AZATHIOPRINE [Concomitant]
     Indication: INFLAMMATORY BOWEL DISEASE
  7. INFLIXIMAB, RECOMBINANT [Suspect]
     Route: 042
  8. VITAMIN TAB [Concomitant]

REACTIONS (1)
  - CROHN'S DISEASE [None]
